FAERS Safety Report 12948832 (Version 1)
Quarter: 2016Q4

REPORT INFORMATION
  Report Type: Spontaneous
  Country: BR (occurrence: BR)
  Receive Date: 20161116
  Receipt Date: 20161116
  Transmission Date: 20170207
  Serious: Yes (Hospitalization)
  Sender: FDA-Public Use
  Company Number: BR-SA-2016SA077953

PATIENT
  Sex: Female

DRUGS (1)
  1. CLEXANE SAFETY LOCK [Suspect]
     Active Substance: ENOXAPARIN SODIUM
     Indication: PULMONARY EMBOLISM
     Dosage: STARTED IN HER 5TH MONTH OF PREGNANCY (APRIL/MAY 2016)
     Route: 065

REACTIONS (5)
  - Injection site pain [Unknown]
  - Drug ineffective [Unknown]
  - Ovarian cyst [Recovered/Resolved]
  - Obstructed labour [Unknown]
  - Exposure during pregnancy [Unknown]
